FAERS Safety Report 6243864-1 (Version None)
Quarter: 2009Q2

REPORT INFORMATION
  Report Type: 
  Country: None (occurrence: None)
  Receive Date: 20090623
  Receipt Date: 20090608
  Transmission Date: 20091009
  Serious: Yes (Hospitalization)
  Sender: FDA-Public Use
  Company Number: ABMIT-09-0270

PATIENT
  Age: 58 Year
  Sex: Female
  Weight: 64.6 kg

DRUGS (5)
  1. ABRAXANE [Suspect]
     Indication: BREAST CANCER METASTATIC
     Dosage: (325 MG,EVERY 3 WEEKS),INTRAVENOUS
     Route: 042
  2. KEPPRA [Concomitant]
  3. PROTONIX [Concomitant]
  4. FUROSEMIDE [Concomitant]
  5. ZOFRAN [Concomitant]

REACTIONS (5)
  - ALANINE AMINOTRANSFERASE INCREASED [None]
  - ASPARTATE AMINOTRANSFERASE INCREASED [None]
  - BLOOD ALKALINE PHOSPHATASE INCREASED [None]
  - BLOOD BILIRUBIN INCREASED [None]
  - CONFUSIONAL STATE [None]
